FAERS Safety Report 24855010 (Version 2)
Quarter: 2025Q1

REPORT INFORMATION
  Report Type: Spontaneous
  Country: AU (occurrence: AU)
  Receive Date: 20250117
  Receipt Date: 20250228
  Transmission Date: 20250409
  Serious: Yes (Other)
  Sender: SAMSUNG BIOEPIS
  Company Number: AU-SAMSUNG BIOEPIS-SB-2025-01203

PATIENT
  Sex: Female
  Weight: 71 kg

DRUGS (2)
  1. RENFLEXIS [Suspect]
     Active Substance: INFLIXIMAB-ABDA
     Indication: Crohn^s disease
     Dosage: 100 MG VIAL FOR INFUSION
  2. RENFLEXIS [Suspect]
     Active Substance: INFLIXIMAB-ABDA
     Dosage: 100 MG VIAL FOR INFUSION
     Dates: start: 201906

REACTIONS (3)
  - Crohn^s disease [Unknown]
  - Maternal exposure during pregnancy [Unknown]
  - Drug level decreased [Unknown]
